FAERS Safety Report 20785739 (Version 1)
Quarter: 2022Q2

REPORT INFORMATION
  Report Type: Spontaneous
  Country: US (occurrence: None)
  Receive Date: 20220504
  Receipt Date: 20220504
  Transmission Date: 20220721
  Serious: No
  Sender: FDA-Public Use
  Company Number: US-ROCHE-2855340

PATIENT
  Age: 49 Year
  Sex: Female
  Weight: 62.652 kg

DRUGS (2)
  1. OCREVUS [Suspect]
     Active Substance: OCRELIZUMAB
     Indication: Primary progressive multiple sclerosis
     Route: 041
     Dates: start: 2017
  2. COVID-19 VACCINE NOS [Suspect]
     Active Substance: COVID-19 VACCINE NOS
     Indication: Product used for unknown indication
     Route: 065
     Dates: end: 202104

REACTIONS (5)
  - SARS-CoV-2 antibody test negative [Unknown]
  - B-lymphocyte count decreased [Not Recovered/Not Resolved]
  - Joint stiffness [Unknown]
  - Fine motor skill dysfunction [Unknown]
  - Weight increased [Unknown]

NARRATIVE: CASE EVENT DATE: 20201101
